FAERS Safety Report 13194219 (Version 1)
Quarter: 2017Q1

REPORT INFORMATION
  Report Type: Report from Study
  Country: FR (occurrence: FR)
  Receive Date: 20170207
  Receipt Date: 20170207
  Transmission Date: 20170428
  Serious: Yes (Life-Threatening, Hospitalization)
  Sender: FDA-Public Use
  Company Number: FR-PFIZER INC-2017048160

PATIENT
  Age: 64 Year
  Sex: Female

DRUGS (11)
  1. PARACETAMOL [Concomitant]
     Active Substance: ACETAMINOPHEN
     Dosage: 3 G, 1X/DAY
  2. NARDIL [Suspect]
     Active Substance: PHENELZINE SULFATE
     Dosage: 4 DF, DAILY
  3. ABILIFY [Concomitant]
     Active Substance: ARIPIPRAZOLE
     Dosage: 10 MG, 1X/DAY
  4. LYSANXIA [Concomitant]
     Active Substance: PRAZEPAM
     Dosage: 15 MG, 1X/DAY
  5. NARDIL [Suspect]
     Active Substance: PHENELZINE SULFATE
     Indication: BIPOLAR DISORDER
     Dosage: 4 DF, DAILY
     Route: 048
     Dates: start: 20161114
  6. CONTRAMAL [Concomitant]
     Active Substance: TRAMADOL HYDROCHLORIDE
     Dosage: UNK
  7. NARDIL [Suspect]
     Active Substance: PHENELZINE SULFATE
     Dosage: 5 DF, DAILY
     Dates: start: 20170102
  8. AMLODIPINE [Concomitant]
     Active Substance: AMLODIPINE BESYLATE
     Dosage: 1 DF, 1X/DAY
  9. INEXIUM /01479302/ [Concomitant]
     Active Substance: ESOMEPRAZOLE MAGNESIUM
     Dosage: 20 MG, 1X/DAY
  10. CONTRAMAL [Concomitant]
     Active Substance: TRAMADOL HYDROCHLORIDE
     Dosage: 150 MG, 1X/DAY
  11. DEBRIDAT /00465201/ [Concomitant]
     Active Substance: TRIMEBUTINE MALEATE
     Dosage: 2 DF, 1X/DAY

REACTIONS (2)
  - Transient ischaemic attack [Recovered/Resolved]
  - Hypotension [Recovered/Resolved]

NARRATIVE: CASE EVENT DATE: 20170104
